FAERS Safety Report 23746710 (Version 1)
Quarter: 2024Q2

REPORT INFORMATION
  Report Type: Report from Study
  Country: CA (occurrence: CA)
  Receive Date: 20240416
  Receipt Date: 20240416
  Transmission Date: 20240716
  Serious: Yes (Death)
  Sender: FDA-Public Use
  Company Number: CA-BAYER-2024A055186

PATIENT
  Age: 53 Year
  Sex: Male

DRUGS (5)
  1. ADEMPAS [Suspect]
     Active Substance: RIOCIGUAT
     Indication: Pulmonary hypertension
     Dosage: 1 MG, TID
     Route: 048
     Dates: start: 20190410, end: 20240403
  2. XARELTO [Concomitant]
     Active Substance: RIVAROXABAN
  3. SENNOSIDES A AND B [Concomitant]
     Active Substance: SENNOSIDES A AND B
  4. LOSEC [Concomitant]
     Active Substance: OMEPRAZOLE
  5. PREGABALIN [Concomitant]
     Active Substance: PREGABALIN

REACTIONS (1)
  - Death [Fatal]

NARRATIVE: CASE EVENT DATE: 20240403
